FAERS Safety Report 10415094 (Version 1)
Quarter: 2014Q2

REPORT INFORMATION
  Report Type: Spontaneous
  Country: US (occurrence: None)
  Receive Date: 20140604
  Receipt Date: 20140604
  Transmission Date: 20141212
  Serious: No
  Sender: FDA-Public Use
  Company Number: 163-POMAL-14030142

PATIENT
  Age: 75 Year
  Sex: Female
  Weight: 67.68 kg

DRUGS (4)
  1. POMALYST (POMALIDOMIDE) (4 MILLIGRAM, CAPSULES) [Suspect]
     Indication: PLASMA CELL MYELOMA
     Dosage: 21 IN 21 D; ON HOLD
     Route: 048
     Dates: start: 20130805
  2. LISINOPRIL [Concomitant]
  3. ASPIRIN (ACETYLSALICYLIC ACID) [Concomitant]
  4. DILAUDID (HYDROMORPHONE HYDROCHLORIDE) [Concomitant]

REACTIONS (1)
  - Impaired healing [None]
